FAERS Safety Report 8063652-3 (Version None)
Quarter: 2012Q1

REPORT INFORMATION
  Report Type: 
  Country: None (occurrence: None)
  Receive Date: 20120123
  Receipt Date: 20120114
  Transmission Date: 20120608
  Serious: Yes (Life-Threatening, Hospitalization, Other)
  Sender: FDA-Public Use
  Company Number: US-ALEXION PHARMACEUTICALS INC.-A201200078

PATIENT
  Sex: Female

DRUGS (16)
  1. SOLIRIS [Suspect]
     Indication: ANTIPHOSPHOLIPID SYNDROME
     Dosage: 900 MG, QW
     Route: 042
     Dates: start: 20110701
  2. RITUXAN [Concomitant]
  3. COREG [Concomitant]
     Dosage: 6.25 MG, QD
  4. LYRICA [Concomitant]
     Dosage: 75 MG, QD AT BEDTIME
  5. SOLIRIS [Suspect]
     Indication: OFF LABEL USE
     Dosage: 1200 MG, Q2W
     Route: 042
  6. AMBIEN [Concomitant]
     Dosage: 10 MG, QD AT BEDTIME
  7. ONDANSETRON HCL [Concomitant]
     Dosage: 4 MG, PRN
  8. PREDNISONE [Concomitant]
     Dosage: 12.5 MG, UNK
     Route: 048
  9. LORATADINE [Concomitant]
     Dosage: 10 MG, QD
     Route: 048
  10. FLUTICASONE PROPIONATE [Concomitant]
     Dosage: UNK, PRN
  11. COUMADIN [Concomitant]
     Dosage: UNK, VARIED DOSES
  12. PHOSLO [Concomitant]
     Dosage: 1334 MG, TID
     Route: 048
  13. VITAMIN B-12 [Concomitant]
     Dosage: 1000 MCG, QD
     Route: 048
  14. ROCEPHIN [Concomitant]
     Dosage: 250 MG, QW
     Route: 042
  15. HEPARIN [Concomitant]
  16. LISINOPRIL [Concomitant]
     Dosage: 10 MG, QD

REACTIONS (10)
  - THROMBOCYTOPENIA [None]
  - VIRAL INFECTION [None]
  - COAGULOPATHY [None]
  - HYPOTENSION [None]
  - CONDITION AGGRAVATED [None]
  - BACTERAEMIA [None]
  - CHEST PAIN [None]
  - SEPTIC SHOCK [None]
  - CLOSTRIDIAL INFECTION [None]
  - HYPERTENSION [None]
